FAERS Safety Report 21371496 (Version 1)
Quarter: 2022Q3

REPORT INFORMATION
  Report Type: Report from Study
  Country: MX (occurrence: MX)
  Receive Date: 20220923
  Receipt Date: 20220923
  Transmission Date: 20221027
  Serious: Yes (Death, Hospitalization, Other)
  Sender: FDA-Public Use
  Company Number: MX-UCBSA-2022056341

PATIENT
  Age: 18 Year
  Sex: Male
  Weight: 40 kg

DRUGS (2)
  1. LACOSAMIDE [Suspect]
     Active Substance: LACOSAMIDE
     Indication: Seizure
     Dosage: UNK
     Dates: start: 20190219
  2. LACOSAMIDE [Suspect]
     Active Substance: LACOSAMIDE
     Dosage: DOSE CHANGES
     Dates: end: 20200425

REACTIONS (5)
  - Encephalitis autoimmune [Fatal]
  - Seizure [Unknown]
  - Medical induction of coma [Not Recovered/Not Resolved]
  - Tracheostomy [Not Recovered/Not Resolved]
  - Drug ineffective [Unknown]

NARRATIVE: CASE EVENT DATE: 20190219
